FAERS Safety Report 4900820-0 (Version None)
Quarter: 2006Q1

REPORT INFORMATION
  Report Type: 
  Country: None (occurrence: None)
  Receive Date: 20060201
  Receipt Date: 20060123
  Transmission Date: 20060701
  Serious: Yes (Hospitalization)
  Sender: FDA-Public Use
  Company Number: JP200601004095

PATIENT
  Sex: Male

DRUGS (2)
  1. GEMZAR [Suspect]
     Indication: LUNG NEOPLASM MALIGNANT
     Dosage: 1000 MG/M2, OTHER, INTRAVENOUS
     Route: 042
  2. CISPLATIN [Concomitant]

REACTIONS (3)
  - LYMPHANGIOSIS CARCINOMATOSA [None]
  - PNEUMONIA CHLAMYDIAL [None]
  - PNEUMONITIS [None]
